FAERS Safety Report 11733642 (Version 1)
Quarter: 2015Q4

REPORT INFORMATION
  Report Type: Spontaneous
  Country: US (occurrence: US)
  Receive Date: 20151110
  Receipt Date: 20151110
  Transmission Date: 20160304
  Serious: No
  Sender: FDA-Public Use
  Company Number: US-ELI_LILLY_AND_COMPANY-US201205004304

PATIENT
  Sex: Female

DRUGS (4)
  1. BONIVA [Concomitant]
     Active Substance: IBANDRONATE SODIUM
  2. FORTEO [Suspect]
     Active Substance: TERIPARATIDE
     Indication: OSTEOPOROSIS
     Dosage: 20 UG, QD
     Dates: start: 2011, end: 2011
  3. FORTEO [Suspect]
     Active Substance: TERIPARATIDE
     Dosage: 20 UG, QD
  4. ACTONEL [Concomitant]
     Active Substance: RISEDRONATE SODIUM

REACTIONS (4)
  - Gastrooesophageal reflux disease [Recovered/Resolved]
  - Bone loss [Unknown]
  - Oropharyngeal discomfort [Recovered/Resolved]
  - Headache [Recovered/Resolved]

NARRATIVE: CASE EVENT DATE: 2011
